FAERS Safety Report 10083210 (Version 1)
Quarter: 2014Q2

REPORT INFORMATION
  Report Type: Report from Study
  Country: US (occurrence: US)
  Receive Date: 20140417
  Receipt Date: 20140417
  Transmission Date: 20141212
  Serious: Yes (Other)
  Sender: FDA-Public Use
  Company Number: US-ROCHE-1379532

PATIENT
  Age: 13 Year
  Sex: Female

DRUGS (1)
  1. NUTROPIN [Suspect]
     Indication: GROWTH HORMONE DEFICIENCY
     Dosage: DAILY
     Route: 058
     Dates: start: 20140308

REACTIONS (4)
  - Syncope [Unknown]
  - Headache [Unknown]
  - Rash [Not Recovered/Not Resolved]
  - Pyrexia [Unknown]
